FAERS Safety Report 4378034-5 (Version None)
Quarter: 2004Q2

REPORT INFORMATION
  Report Type: 
  Country: None (occurrence: None)
  Receive Date: 20040609
  Receipt Date: 20040527
  Transmission Date: 20050107
  Serious: Yes (Hospitalization)
  Sender: FDA-Public Use
  Company Number: 2004035758

PATIENT
  Age: 86 Year
  Sex: Male

DRUGS (4)
  1. SERTRALINE (SERTRALINE) [Suspect]
     Indication: DEPRESSION
     Dosage: 100 MG (100 MG, 1 IN 1 D), ORAL
     Route: 048
     Dates: start: 20040326, end: 20040508
  2. LANSOPRAZOLE [Concomitant]
  3. TOLTERODINE L-TARTRATE           (TOLTERODINE L-TARTRATE) [Concomitant]
  4. TAMSULOSIN          (TAMSULOSIN) [Concomitant]

REACTIONS (1)
  - CEREBRAL HAEMORRHAGE [None]
